FAERS Safety Report 4657424-7 (Version None)
Quarter: 2005Q2

REPORT INFORMATION
  Report Type: 
  Country: None (occurrence: None)
  Receive Date: 20050510
  Receipt Date: 20050504
  Transmission Date: 20051028
  Serious: Yes (Other)
  Sender: FDA-Public Use
  Company Number: US-KINGPHARMUSA00001-K200500568

PATIENT

DRUGS (1)
  1. ALTACE [Suspect]
     Route: 048

REACTIONS (1)
  - SUICIDAL IDEATION [None]
